FAERS Safety Report 7602760-5 (Version None)
Quarter: 2011Q3

REPORT INFORMATION
  Report Type: 
  Country: None (occurrence: None)
  Receive Date: 20110712
  Receipt Date: 20110628
  Transmission Date: 20111222
  Serious: Yes (Other)
  Sender: FDA-Public Use
  Company Number: US-CELGENEUS-163-21660-11063833

PATIENT

DRUGS (3)
  1. ABRAXANE [Suspect]
     Dosage: 150 MILLIGRAM/SQ. METER
     Route: 051
  2. BEVACIZUMAB [Suspect]
     Dosage: 10 MILLIGRAM/KILOGRAM
     Route: 051
  3. GEMCITABINE [Suspect]
     Dosage: 1500 MILLIGRAM/SQ. METER
     Route: 051

REACTIONS (54)
  - PERICARDIAL EFFUSION [None]
  - RENAL FAILURE ACUTE [None]
  - SKIN DISCOLOURATION [None]
  - LYMPHOEDEMA [None]
  - CHEST PAIN [None]
  - RASH [None]
  - NAUSEA [None]
  - SCOTOMA [None]
  - ABDOMINAL PAIN UPPER [None]
  - EPISTAXIS [None]
  - INFECTION [None]
  - ANAEMIA [None]
  - ALOPECIA [None]
  - OEDEMA [None]
  - THROMBOSIS [None]
  - HEADACHE [None]
  - UPPER RESPIRATORY TRACT INFECTION [None]
  - DEPRESSION [None]
  - DECREASED APPETITE [None]
  - MUCOSAL INFLAMMATION [None]
  - CONJUNCTIVITIS [None]
  - CARDIAC TAMPONADE [None]
  - TACHYCARDIA [None]
  - TRICUSPID VALVE INCOMPETENCE [None]
  - ANXIETY [None]
  - DYSGEUSIA [None]
  - THROMBOCYTOPENIA [None]
  - VISION BLURRED [None]
  - CONVULSION [None]
  - ORAL INFECTION [None]
  - WEIGHT DECREASED [None]
  - INFLUENZA LIKE ILLNESS [None]
  - VOMITING [None]
  - NEUTROPENIA [None]
  - DIARRHOEA [None]
  - NEUROPATHY PERIPHERAL [None]
  - HEART VALVE INCOMPETENCE [None]
  - AMENORRHOEA [None]
  - PALMAR-PLANTAR ERYTHRODYSAESTHESIA SYNDROME [None]
  - DYSPEPSIA [None]
  - RHINORRHOEA [None]
  - HYPERTENSION [None]
  - COUGH [None]
  - TEMPERATURE INTOLERANCE [None]
  - PHARYNGITIS [None]
  - PELVIC PAIN [None]
  - HOT FLUSH [None]
  - OEDEMA PERIPHERAL [None]
  - BREAST ABSCESS [None]
  - JAUNDICE [None]
  - GASTROOESOPHAGEAL REFLUX DISEASE [None]
  - BONE PAIN [None]
  - INSOMNIA [None]
  - FATIGUE [None]
